FAERS Safety Report 23575762 (Version 1)
Quarter: 2024Q1

REPORT INFORMATION
  Report Type: Spontaneous
  Country: US (occurrence: US)
  Receive Date: 20240228
  Receipt Date: 20240228
  Transmission Date: 20240409
  Serious: Yes (Other)
  Sender: FDA-Public Use
  Company Number: US-PFIZER INC-PV202400027803

PATIENT
  Age: 75 Year
  Sex: Female

DRUGS (2)
  1. IBRANCE [Suspect]
     Active Substance: PALBOCICLIB
     Indication: Breast cancer metastatic
     Dosage: 125 MG, 3 WEEK ON, 1 WEEK OFF
     Route: 048
     Dates: start: 20231016
  2. IBRANCE [Suspect]
     Active Substance: PALBOCICLIB
     Dosage: 125 MG ONCE A DAY 2 WEEKS ON, 2 WEEKS OFF
     Route: 048
     Dates: start: 20231116

REACTIONS (1)
  - Thrombocytopenia [Unknown]
